FAERS Safety Report 5323730-6 (Version None)
Quarter: 2007Q2

REPORT INFORMATION
  Report Type: 
  Country: None (occurrence: None)
  Receive Date: 20070514
  Receipt Date: 20070507
  Transmission Date: 20071010
  Serious: Yes (Hospitalization)
  Sender: FDA-Public Use
  Company Number: US-AVENTIS-200711947US

PATIENT
  Sex: Male
  Weight: 70.45 kg

DRUGS (32)
  1. KETEK [Suspect]
     Indication: BRONCHITIS
     Dosage: DOSE: 2 TABS
     Route: 048
     Dates: start: 20061201, end: 20061201
  2. LANTUS [Concomitant]
     Dosage: DOSE: UNK
  3. LANTUS [Concomitant]
     Route: 058
     Dates: end: 20070102
  4. LANTUS [Concomitant]
     Dates: start: 20070102, end: 20070102
  5. LANTUS [Concomitant]
     Dates: start: 20070103, end: 20070104
  6. LANTUS [Concomitant]
     Route: 058
     Dates: start: 20070105, end: 20070107
  7. LANTUS [Concomitant]
     Dates: start: 20070109, end: 20070109
  8. LANTUS [Concomitant]
     Dates: start: 20070110, end: 20070110
  9. LANTUS [Concomitant]
     Dates: start: 20070111, end: 20070111
  10. LANTUS [Concomitant]
     Dates: start: 20070112, end: 20070112
  11. LANTUS [Concomitant]
     Dates: start: 20070113
  12. HUMALOG                            /00030501/ [Concomitant]
     Dosage: DOSE: WITH MEALS
  13. HUMALOG                            /00030501/ [Concomitant]
     Dosage: DOSE: 10 U WITH MEALS
     Dates: start: 20070103, end: 20070104
  14. HUMALOG                            /00030501/ [Concomitant]
     Dosage: DOSE: 15 U WITH MEALS
     Dates: start: 20070105
  15. FUROSEMIDE [Concomitant]
     Route: 048
  16. FUROSEMIDE [Concomitant]
     Dosage: DOSE: 40 MG (1 TAB)
     Dates: start: 20070102
  17. FUROSEMIDE [Concomitant]
     Route: 042
     Dates: start: 20070102, end: 20070103
  18. FUROSEMIDE [Concomitant]
     Dosage: DOSE: 80 MG Q 8 HR TWICE
     Route: 042
     Dates: start: 20070106, end: 20070107
  19. FUROSEMIDE [Concomitant]
     Dosage: DOSE: 80 MG Q 12 HR  X 3
     Route: 042
     Dates: start: 20070108, end: 20070110
  20. FUROSEMIDE [Concomitant]
     Dosage: DOSE: 2 T40 MG TAB
     Route: 048
     Dates: start: 20070108, end: 20070109
  21. FUROSEMIDE [Concomitant]
     Dosage: DOSE: 80 MG (2 TABS)
     Dates: start: 20070110
  22. FUROSEMIDE [Concomitant]
     Route: 048
     Dates: start: 20070115
  23. DIGOXIN [Concomitant]
     Route: 048
  24. DIGOXIN [Concomitant]
     Dosage: DOSE: .5 TABLET 0.625
     Route: 048
     Dates: start: 20070102, end: 20070114
  25. DIGOXIN [Concomitant]
     Route: 048
     Dates: start: 20070115
  26. LEVOTHYROXINE SODIUM [Concomitant]
     Route: 048
  27. ISOSORBIDE MONONITRATE [Concomitant]
     Route: 048
  28. CAPTOPRIL [Concomitant]
     Route: 048
     Dates: end: 20070102
  29. CAPTOPRIL [Concomitant]
     Route: 048
     Dates: start: 20070114
  30. COREG [Concomitant]
     Dosage: DOSE: 3.125, 1/2 TAB
  31. K-DUR 10 [Concomitant]
     Route: 048
  32. BIAXIN [Concomitant]
     Route: 048

REACTIONS (4)
  - DRUG INEFFECTIVE [None]
  - DYSPNOEA [None]
  - LOBAR PNEUMONIA [None]
  - VISION BLURRED [None]
